FAERS Safety Report 8623485-3 (Version None)
Quarter: 2012Q3

REPORT INFORMATION
  Report Type: 
  Country: None (occurrence: None)
  Receive Date: 20120827
  Receipt Date: 20120816
  Transmission Date: 20120928
  Serious: Yes (Hospitalization)
  Sender: FDA-Public Use
  Company Number: BR-ASTRAZENECA-2012SE60255

PATIENT
  Age: 60 Year
  Sex: Female

DRUGS (2)
  1. NEXIUM [Suspect]
     Route: 048
     Dates: start: 20120101
  2. CALCIUM [Concomitant]
     Route: 048

REACTIONS (4)
  - BLOOD PRESSURE ABNORMAL [None]
  - GALLBLADDER DISORDER [None]
  - LARYNGEAL OEDEMA [None]
  - VOCAL CORD DISORDER [None]
